FAERS Safety Report 5954859-7 (Version None)
Quarter: 2008Q4

REPORT INFORMATION
  Report Type: 
  Country: None (occurrence: None)
  Receive Date: 20081031
  Receipt Date: 20080623
  Transmission Date: 20090506
  Serious: No
  Sender: FDA-Public Use
  Company Number: 2008PV035876

PATIENT
  Age: 52 Year
  Sex: Female
  Weight: 136.0791 kg

DRUGS (19)
  1. SYMLIN [Suspect]
     Indication: DIABETES MELLITUS
     Dosage: 60 MCG, 45 MCG, 30 MCG, 15 MCG; TID; SC
     Route: 058
     Dates: start: 20080601, end: 20080601
  2. SYMLIN [Suspect]
     Indication: DIABETES MELLITUS
     Dosage: 60 MCG, 45 MCG, 30 MCG, 15 MCG; TID; SC
     Route: 058
     Dates: start: 20080601, end: 20080601
  3. SYMLIN [Suspect]
     Indication: DIABETES MELLITUS
     Dosage: 60 MCG, 45 MCG, 30 MCG, 15 MCG; TID; SC
     Route: 058
     Dates: start: 20080701, end: 20080701
  4. SYMLIN [Suspect]
     Indication: DIABETES MELLITUS
     Dosage: 60 MCG, 45 MCG, 30 MCG, 15 MCG; TID; SC
     Route: 058
     Dates: start: 20080701, end: 20080709
  5. THYROID TAB [Concomitant]
  6. SLOW-K [Concomitant]
  7. MAGNESIUM SULFATE [Concomitant]
  8. LISINOPRIL [Concomitant]
  9. INDOMETHACIN [Concomitant]
  10. TRICOR [Concomitant]
  11. BYSTOLIC [Concomitant]
  12. FERROUS SULFATE TAB [Concomitant]
  13. VITAMIN B-12 [Concomitant]
  14. ASPIRIN [Concomitant]
  15. NEXIUM [Concomitant]
  16. LACTOBACILLUS ACIDOPHILUS [Concomitant]
  17. BYETTA [Concomitant]
  18. HUMALOG [Concomitant]
  19. GLUCOPHAGE [Concomitant]

REACTIONS (4)
  - BLOOD GLUCOSE INCREASED [None]
  - DRUG INEFFECTIVE [None]
  - DYSGEUSIA [None]
  - NAUSEA [None]
